FAERS Safety Report 18671388 (Version 1)
Quarter: 2020Q4

REPORT INFORMATION
  Report Type: Spontaneous
  Country: US (occurrence: US)
  Receive Date: 20201228
  Receipt Date: 20201228
  Transmission Date: 20210114
  Serious: No
  Sender: FDA-Public Use
  Company Number: US-SA-2020SA363475

PATIENT

DRUGS (1)
  1. NASACORT ALLERGY 24HR [Suspect]
     Active Substance: TRIAMCINOLONE ACETONIDE
     Indication: HYPERSENSITIVITY
     Dosage: DRUG STRUCTURE DOSAGE :   1 TO 2 SPRAYS IN EACH NOSTRIL  DRUG INTERVAL DOSAGE :   QD  DRUG TREATMENT
     Route: 045

REACTIONS (3)
  - Lacrimation increased [Unknown]
  - Rhinalgia [Unknown]
  - Burning sensation [Unknown]
